FAERS Safety Report 13794497 (Version 5)
Quarter: 2017Q3

REPORT INFORMATION
  Report Type: Spontaneous
  Country: US (occurrence: US)
  Receive Date: 20170726
  Receipt Date: 20170904
  Transmission Date: 20171127
  Serious: Yes (Other)
  Sender: FDA-Public Use
  Company Number: US-TEVA-787890ACC

PATIENT
  Age: 45 Year
  Sex: Male
  Weight: 65.83 kg

DRUGS (12)
  1. FLONASE [Interacting]
     Active Substance: FLUTICASONE PROPIONATE
     Indication: BRONCHITIS
     Dosage: 1-2 SPRAY EACH NOSTRIL DAILY
     Route: 045
     Dates: start: 20160928
  2. CEFDINIR. [Concomitant]
     Active Substance: CEFDINIR
     Indication: EAR PAIN
  3. PREDNISONE. [Suspect]
     Active Substance: PREDNISONE
     Indication: BRONCHITIS
     Route: 048
     Dates: start: 20161010, end: 20161019
  4. METOPROLOL TARTRATE. [Concomitant]
     Active Substance: METOPROLOL TARTRATE
     Dosage: 200 MILLIGRAM DAILY;
  5. FLONASE [Interacting]
     Active Substance: FLUTICASONE PROPIONATE
     Indication: EAR PAIN
  6. CEFDINIR. [Concomitant]
     Active Substance: CEFDINIR
     Indication: BRONCHITIS
  7. PREDNISONE CADISTA [Interacting]
     Active Substance: PREDNISONE
     Dosage: 20 MILLIGRAM DAILY;
     Route: 048
     Dates: start: 20160918, end: 20160919
  8. GENVOYA [Concomitant]
     Active Substance: COBICISTAT\ELVITEGRAVIR\EMTRICITABINE\TENOFOVIR ALAFENAMIDE FUMARATE
  9. NORVIR [Interacting]
     Active Substance: RITONAVIR
     Indication: HIV INFECTION
     Route: 048
     Dates: start: 20160913
  10. PREDNISONE CADISTA [Interacting]
     Active Substance: PREDNISONE
     Indication: BRONCHITIS
     Dosage: 30 MILLIGRAM DAILY;
     Route: 048
     Dates: start: 20160916, end: 20160917
  11. PREDNISONE CADISTA [Interacting]
     Active Substance: PREDNISONE
     Dosage: 10 MILLIGRAM DAILY;
     Route: 048
     Dates: start: 20160920, end: 20160921
  12. CELEXA [Suspect]
     Active Substance: CITALOPRAM HYDROBROMIDE
     Indication: ANTIDEPRESSANT THERAPY
     Route: 048
     Dates: start: 20160209

REACTIONS (38)
  - Hypertension [Recovered/Resolved]
  - Dyspnoea [Unknown]
  - Fall [Unknown]
  - Chest pain [Not Recovered/Not Resolved]
  - Paranoia [Unknown]
  - Alopecia [Recovered/Resolved]
  - Fatigue [Unknown]
  - Hair growth abnormal [Unknown]
  - Swelling face [Recovering/Resolving]
  - Skin lesion [Unknown]
  - Suicidal ideation [Recovered/Resolved]
  - Arthralgia [Not Recovered/Not Resolved]
  - Fear [Unknown]
  - Neck pain [Unknown]
  - Bronchitis [Unknown]
  - Bipolar disorder [Unknown]
  - Agoraphobia [Unknown]
  - Musculoskeletal pain [Not Recovered/Not Resolved]
  - Anxiety [Unknown]
  - Clubbing [Unknown]
  - Cushing^s syndrome [Not Recovered/Not Resolved]
  - Mental impairment [Unknown]
  - Drug interaction [Unknown]
  - Contusion [Unknown]
  - Pain in extremity [Unknown]
  - Rash [Unknown]
  - Adverse event [Unknown]
  - Pain [Unknown]
  - Fat tissue increased [Unknown]
  - Muscular weakness [Unknown]
  - Amnesia [Unknown]
  - Chest discomfort [Recovered/Resolved]
  - Laceration [Unknown]
  - Back pain [Unknown]
  - Weight increased [Unknown]
  - Mania [Unknown]
  - Feeling abnormal [Unknown]
  - Depression [Unknown]

NARRATIVE: CASE EVENT DATE: 201701
